FAERS Safety Report 8337691 (Version 8)
Quarter: 2013Q3

REPORT INFORMATION
  Report Type: Report from Study
  Country: MY (occurrence: MY)
  Receive Date: 20120116
  Receipt Date: 20130911
  Transmission Date: 20140515
  Serious: Yes (Hospitalization)
  Sender: FDA-Public Use
  Company Number: MY-BRISTOL-MYERS SQUIBB COMPANY-16349391

PATIENT
  Age: 41 Year
  Sex: Male

DRUGS (2)
  1. ABILIFY TABS [Suspect]
     Indication: SCHIZOPHRENIA
     Dosage: 25OCT-09NOV116MG.10NOV-05DEC11 12MG(6DEC11-20DEC11: 18MG15DAYS),(21DEC11-05JAN12:16DAYS 24MG)
     Route: 048
     Dates: start: 20111025, end: 20120105
  2. AMLODIPINE [Concomitant]
     Dates: start: 20111213

REACTIONS (1)
  - Schizophrenia [Recovered/Resolved]
